FAERS Safety Report 9859691 (Version 3)
Quarter: 2014Q3

REPORT INFORMATION
  Report Type: Spontaneous
  Country: FR (occurrence: FR)
  Receive Date: 20140131
  Receipt Date: 20140723
  Transmission Date: 20150326
  Serious: Yes (Hospitalization)
  Sender: FDA-Public Use
  Company Number: FR-VIIV HEALTHCARE LIMITED-B0962532A

PATIENT
  Age: 36 Year
  Sex: Female

DRUGS (16)
  1. INEXIUM [Concomitant]
     Active Substance: ESOMEPRAZOLE
  2. ZIAGEN [Suspect]
     Active Substance: ABACAVIR SULFATE
     Indication: HIV TEST POSITIVE
     Dosage: 600MG PER DAY
     Route: 048
     Dates: start: 2012, end: 20131018
  3. ZECLAR [Suspect]
     Active Substance: CLARITHROMYCIN
     Indication: DISSEMINATED TUBERCULOSIS
     Dosage: 1000MG PER DAY
     Route: 048
     Dates: start: 20131015, end: 20131018
  4. MYAMBUTOL [Concomitant]
     Active Substance: ETHAMBUTOL HYDROCHLORIDE
     Indication: DISSEMINATED TUBERCULOSIS
     Dates: start: 20131015, end: 20131018
  5. OFLOCET [Concomitant]
     Active Substance: OFLOXACIN
     Dates: start: 20131024
  6. LAMIVUDINE-HIV [Suspect]
     Active Substance: LAMIVUDINE
     Indication: HIV TEST POSITIVE
     Dosage: 50UG PER DAY
     Route: 048
     Dates: start: 2012, end: 20131018
  7. BACTRIM [Concomitant]
     Active Substance: SULFAMETHOXAZOLE\TRIMETHOPRIM
     Indication: PROPHYLAXIS
     Dates: start: 201307
  8. BISOPROLOL [Concomitant]
     Active Substance: BISOPROLOL
  9. RIMIFON [Concomitant]
     Active Substance: ISONIAZID
     Indication: DISSEMINATED TUBERCULOSIS
     Dates: start: 20131015
  10. ANSATIPINE [Concomitant]
     Active Substance: RIFABUTIN
     Indication: DISSEMINATED TUBERCULOSIS
     Dates: start: 20131015
  11. LASILIX [Concomitant]
     Active Substance: FUROSEMIDE
  12. ISENTRESS [Concomitant]
     Active Substance: RALTEGRAVIR POTASSIUM
  13. KEPPRA [Suspect]
     Active Substance: LEVETIRACETAM
     Indication: PRODUCT USED FOR UNKNOWN INDICATION
     Dosage: 1000MG PER DAY
     Route: 048
     Dates: start: 20130902, end: 20131018
  14. PIRILENE [Suspect]
     Active Substance: PYRAZINAMIDE
     Indication: DISSEMINATED TUBERCULOSIS
     Dosage: 1250MG PER DAY
     Route: 048
     Dates: start: 20131015, end: 20131018
  15. PREZISTA [Concomitant]
     Active Substance: DARUNAVIR ETHANOLATE
     Indication: HIV INFECTION
     Route: 065
     Dates: start: 2012
  16. NORVIR [Concomitant]
     Active Substance: RITONAVIR
     Indication: HIV INFECTION
     Route: 065
     Dates: start: 2012

REACTIONS (7)
  - Oedematous pancreatitis [Recovered/Resolved]
  - Nausea [Recovered/Resolved]
  - Vomiting [Recovered/Resolved]
  - Abdominal pain [Recovered/Resolved]
  - Pancreatitis [Recovered/Resolved]
  - Peripancreatic fluid collection [Recovered/Resolved]
  - Ascites [Unknown]

NARRATIVE: CASE EVENT DATE: 20131017
